FAERS Safety Report 23747412 (Version 2)
Quarter: 2024Q2

REPORT INFORMATION
  Report Type: Spontaneous
  Country: IN (occurrence: IN)
  Receive Date: 20240416
  Receipt Date: 20240423
  Transmission Date: 20240716
  Serious: Yes (Hospitalization)
  Sender: FDA-Public Use
  Company Number: IN-BRIAN CONNER SVP QUALITY AND CHIEF COMPLIANCE OFFICER-2024XER00198

PATIENT
  Age: 2 Day
  Sex: Female
  Weight: 2.01 kg

DRUGS (9)
  1. GLUCAGON [Suspect]
     Active Substance: GLUCAGON\GLUCAGON HYDROCHLORIDE\WATER
     Indication: Hypoglycaemia neonatal
     Dosage: 10 MCG/KG/HR
     Route: 042
  2. GLUCAGON [Suspect]
     Active Substance: GLUCAGON\GLUCAGON HYDROCHLORIDE\WATER
     Dosage: 10 MCG/KG/HR
     Route: 042
  3. GLUCAGON [Suspect]
     Active Substance: GLUCAGON\GLUCAGON HYDROCHLORIDE\WATER
     Dosage: 5 MCG/KG/HR
     Route: 042
  4. DEXTROSE [Concomitant]
     Active Substance: DEXTROSE\DEXTROSE MONOHYDRATE
     Indication: Neonatal hypotension
     Dosage: 5.3 MG/KG/MINUTE
     Route: 042
  5. DEXTROSE [Concomitant]
     Active Substance: DEXTROSE\DEXTROSE MONOHYDRATE
     Dosage: 8-9 MG/KG/MIN
     Route: 042
  6. DEXTROSE [Concomitant]
     Active Substance: DEXTROSE\DEXTROSE MONOHYDRATE
     Dosage: 12 MG/KG/MIN
     Route: 042
  7. DEXTROSE [Concomitant]
     Active Substance: DEXTROSE\DEXTROSE MONOHYDRATE
     Dosage: 6.5 MCG/KG/HR
     Route: 042
  8. DEXTROSE [Concomitant]
     Active Substance: DEXTROSE\DEXTROSE MONOHYDRATE
     Dosage: 6 MCG/KG/HR
     Route: 042
  9. DEXTROSE [Concomitant]
     Active Substance: DEXTROSE\DEXTROSE MONOHYDRATE
     Dosage: 5.5 MCG/KG/HR
     Route: 042

REACTIONS (1)
  - Metabolic acidosis [Recovered/Resolved]
